FAERS Safety Report 7343875-9 (Version None)
Quarter: 2011Q1

REPORT INFORMATION
  Report Type: 
  Country: None (occurrence: None)
  Receive Date: 20110310
  Receipt Date: 20110303
  Transmission Date: 20110831
  Serious: Yes (Hospitalization)
  Sender: FDA-Public Use
  Company Number: BR-ROCHE-763598

PATIENT
  Sex: Female
  Weight: 53 kg

DRUGS (6)
  1. MAXSULID [Concomitant]
  2. TOCILIZUMAB [Suspect]
     Dosage: FORM: INFUSION. THERAPY INTERRUPTED FOR ONE MONTH
     Route: 065
     Dates: start: 20100601
  3. TOCILIZUMAB [Suspect]
     Route: 065
  4. METHOTREXATE [Concomitant]
  5. OMEPRAZOLE [Concomitant]
  6. OS-CAL D [Concomitant]

REACTIONS (1)
  - BENIGN MUSCLE NEOPLASM [None]
